FAERS Safety Report 16883610 (Version 1)
Quarter: 2019Q4

REPORT INFORMATION
  Report Type: Spontaneous
  Country: ES (occurrence: ES)
  Receive Date: 20191004
  Receipt Date: 20191004
  Transmission Date: 20200122
  Serious: Yes (Other)
  Sender: FDA-Public Use
  Company Number: ES-ZYDUS-041689

PATIENT
  Age: 62 Year
  Sex: Male

DRUGS (1)
  1. METFORMIN [Suspect]
     Active Substance: METFORMIN HYDROCHLORIDE
     Indication: TYPE 2 DIABETES MELLITUS
     Route: 065

REACTIONS (9)
  - Lichenification [Recovering/Resolving]
  - Erythema [Recovering/Resolving]
  - Hyperkeratosis [Recovering/Resolving]
  - Pruritus [Recovered/Resolved]
  - Parakeratosis [Recovering/Resolving]
  - Skin exfoliation [Recovering/Resolving]
  - Condition aggravated [Recovering/Resolving]
  - Dermatitis psoriasiform [Recovering/Resolving]
  - Dermatitis exfoliative generalised [Recovering/Resolving]
